FAERS Safety Report 16232535 (Version 1)
Quarter: 2019Q2

REPORT INFORMATION
  Report Type: Spontaneous
  Country: KR (occurrence: KR)
  Receive Date: 20190424
  Receipt Date: 20190424
  Transmission Date: 20190711
  Serious: Yes (Hospitalization, Other)
  Sender: FDA-Public Use
  Company Number: KR-009507513-1904KOR009749

PATIENT
  Sex: Male

DRUGS (4)
  1. KEYTRUDA [Suspect]
     Active Substance: PEMBROLIZUMAB
     Indication: TONSIL CANCER
     Dosage: UNK
     Dates: start: 20190403
  2. ALBUMIN HUMAN [Concomitant]
     Active Substance: ALBUMIN HUMAN
     Dosage: ^QUANTITY: 2, DAYS: 2^
     Dates: start: 20190326, end: 20190408
  3. CIRCADIN [Concomitant]
     Active Substance: MELATONIN
     Dosage: ^QUANTITY: 1, DAYS: 40^
     Dates: start: 20190311, end: 20190416
  4. POVIDONE [Concomitant]
     Active Substance: POVIDONE
     Dosage: ^QUANTITY: 5, DAYS: 2^
     Dates: start: 20190412, end: 20190413

REACTIONS (2)
  - Adverse event [Unknown]
  - Metastases to central nervous system [Unknown]

NARRATIVE: CASE EVENT DATE: 201904
